FAERS Safety Report 5209736-6 (Version None)
Quarter: 2006Q4

REPORT INFORMATION
  Report Type: 
  Country: None (occurrence: None)
  Receive Date: 20061128
  Receipt Date: 20051216
  Transmission Date: 20070319
  Serious: Yes (Other)
  Sender: FDA-Public Use
  Company Number: 2005144547

PATIENT
  Age: 83 Year
  Sex: Male
  Weight: 78.0187 kg

DRUGS (10)
  1. TIKOSYN [Suspect]
     Indication: ATRIAL FIBRILLATION
     Dosage: 0.5 MG (0.25 MG, 2 IN 1 D)
     Dates: start: 20051014
  2. ASPIRIN [Concomitant]
  3. DIOVAN HCT [Concomitant]
  4. VALSARTAN [Concomitant]
  5. DIGOXIN [Concomitant]
  6. LIPITOR [Concomitant]
  7. LASIX [Concomitant]
  8. ATIVAN [Concomitant]
  9. AMBIEN [Concomitant]
  10. LANOXIN [Concomitant]

REACTIONS (4)
  - DIZZINESS [None]
  - DYSPNOEA [None]
  - INSOMNIA [None]
  - MALAISE [None]
